FAERS Safety Report 7629973-0 (Version None)
Quarter: 2011Q3

REPORT INFORMATION
  Report Type: 
  Country: None (occurrence: None)
  Receive Date: 20110722
  Receipt Date: 20110719
  Transmission Date: 20111222
  Serious: Yes (Life-Threatening, Hospitalization, Disabling, Other)
  Sender: FDA-Public Use
  Company Number: US-MERCK-1107USA02203

PATIENT
  Age: 64 Year
  Sex: Female

DRUGS (12)
  1. RANEXA [Suspect]
     Route: 065
  2. HUMALOG [Concomitant]
     Route: 065
  3. TOPROL-XL [Concomitant]
     Route: 065
  4. DIOVAN [Concomitant]
     Route: 065
  5. ASPIRIN [Concomitant]
     Route: 065
  6. ALDACTONE [Concomitant]
     Route: 065
  7. GABAPENTIN [Concomitant]
     Route: 065
  8. ZOCOR [Suspect]
     Indication: BLOOD CHOLESTEROL INCREASED
     Route: 048
     Dates: start: 20060101, end: 20110701
  9. PLAVIX [Concomitant]
     Route: 065
  10. ADVAIR DISKUS 100/50 [Concomitant]
     Route: 065
  11. RANEXA [Suspect]
     Route: 065
  12. HUMULIN R [Concomitant]
     Route: 065

REACTIONS (5)
  - MYOCARDIAL INFARCTION [None]
  - RENAL IMPAIRMENT [None]
  - ADVERSE EVENT [None]
  - MICTURITION DISORDER [None]
  - RHABDOMYOLYSIS [None]
